FAERS Safety Report 10597373 (Version 1)
Quarter: 2014Q4

REPORT INFORMATION
  Report Type: Spontaneous
  Country: US (occurrence: None)
  Receive Date: 20141120
  Receipt Date: 20141120
  Transmission Date: 20150529
  Serious: No
  Sender: FDA-Public Use
  Company Number: None

PATIENT
  Age: 42 Year
  Sex: Female
  Weight: 153.6 kg

DRUGS (2)
  1. XANAX [Concomitant]
     Active Substance: ALPRAZOLAM
  2. ESCITALOPRAM [Suspect]
     Active Substance: ESCITALOPRAM OXALATE
     Indication: ANXIETY
     Dosage: 20MG QD UP TO 1 1/2 QD PO
     Route: 048
     Dates: start: 20120308, end: 20120621

REACTIONS (8)
  - Product substitution issue [None]
  - Drug effect decreased [None]
  - Condition aggravated [None]
  - Headache [None]
  - Crying [None]
  - Sleep disorder [None]
  - Affective disorder [None]
  - Anticholinergic syndrome [None]
